FAERS Safety Report 6765825-6 (Version None)
Quarter: 2010Q2

REPORT INFORMATION
  Report Type: 
  Country: None (occurrence: None)
  Receive Date: 20100611
  Receipt Date: 20100527
  Transmission Date: 20101027
  Serious: Yes (Disabling)
  Sender: FDA-Public Use
  Company Number: GB-ROCHE-706192

PATIENT
  Sex: Female
  Weight: 63.3 kg

DRUGS (4)
  1. BEVACIZUMAB [Suspect]
     Indication: COLON CANCER
     Dosage: FORM: INFUSION, DATE MOST RECENT DOSE GIVEN: 29 DECEMBER 2009, CURRENT CYCLE NUMBER: 15, COMPLETED
     Route: 042
     Dates: start: 20090303, end: 20091229
  2. CAPECITABINE [Suspect]
     Indication: COLON CANCER
     Dosage: DATE MOST RECENT DOSE GIVEN: 28 JULY 2009.
     Route: 048
     Dates: start: 20090303
  3. CAPECITABINE [Suspect]
     Dosage: 10% DOSE REDUCTION. COMPLETED CYCLE 15.
     Route: 048
     Dates: end: 20091229
  4. ASPIRIN [Concomitant]
     Indication: MICROANGIOPATHY
     Dosage: INDICATION: SMALL VESSEL DISEASE (BRAIN)
     Route: 048
     Dates: start: 20100119

REACTIONS (1)
  - ARTHROPATHY [None]
